FAERS Safety Report 11785098 (Version 1)
Quarter: 2015Q4

REPORT INFORMATION
  Report Type: Report from Study
  Country: US (occurrence: US)
  Receive Date: 20151130
  Receipt Date: 20151130
  Transmission Date: 20160305
  Serious: Yes (Hospitalization, Other)
  Sender: FDA-Public Use
  Company Number: US-ROCHE-783479

PATIENT
  Age: 64 Year
  Sex: Female

DRUGS (9)
  1. CARBOPLATIN. [Suspect]
     Active Substance: CARBOPLATIN
     Indication: FALLOPIAN TUBE CANCER
  2. BEVACIZUMAB [Suspect]
     Active Substance: BEVACIZUMAB
     Indication: MALIGNANT PERITONEAL NEOPLASM
  3. CARBOPLATIN. [Suspect]
     Active Substance: CARBOPLATIN
     Indication: OVARIAN CANCER
     Dosage: AUC 6 IP ON DAY 1, CYCLES: 1-6
     Route: 065
  4. PACLITAXEL. [Suspect]
     Active Substance: PACLITAXEL
     Indication: FALLOPIAN TUBE CANCER
  5. PACLITAXEL. [Suspect]
     Active Substance: PACLITAXEL
     Indication: MALIGNANT PERITONEAL NEOPLASM
  6. BEVACIZUMAB [Suspect]
     Active Substance: BEVACIZUMAB
     Indication: FALLOPIAN TUBE CANCER
     Dosage: OVER 30-90 MIN ON DAY 1, PHASE B: ( CYCLES 7-22)
     Route: 042
  7. PACLITAXEL. [Suspect]
     Active Substance: PACLITAXEL
     Indication: OVARIAN CANCER
     Dosage: OVER 1 HR ON DAYS 1, 8 + 15
     Route: 042
  8. CARBOPLATIN. [Suspect]
     Active Substance: CARBOPLATIN
     Indication: MALIGNANT PERITONEAL NEOPLASM
  9. BEVACIZUMAB [Suspect]
     Active Substance: BEVACIZUMAB
     Indication: OVARIAN CANCER
     Dosage: OVER 30-90 MIN ON DAY 1, BEGINNING WITH CYCLE 2. LAST DOSE PRIOR TO SAE: 16 JUNE 2010
     Route: 042

REACTIONS (6)
  - Gastrointestinal anastomotic leak [Unknown]
  - Large intestine perforation [Unknown]
  - Anaemia [Unknown]
  - Wound infection [Unknown]
  - Haemoglobin decreased [Unknown]
  - Haematoma [Unknown]

NARRATIVE: CASE EVENT DATE: 20100703
